FAERS Safety Report 5668064-5 (Version None)
Quarter: 2008Q1

REPORT INFORMATION
  Report Type: 
  Country: None (occurrence: None)
  Receive Date: 20080313
  Receipt Date: 20080228
  Transmission Date: 20080703
  Serious: Yes (Other)
  Sender: FDA-Public Use
  Company Number: B0511311A

PATIENT
  Age: 44 Year
  Sex: Female

DRUGS (7)
  1. ONDANSETRON HYDROCHLORIDE [Suspect]
     Indication: PROPHYLAXIS OF NAUSEA AND VOMITING
     Dosage: INTRAVENOUS
     Route: 042
  2. PROPOFOL [Concomitant]
  3. MIDAZOLAM HCL [Concomitant]
  4. SUXAMETHONIUM [Concomitant]
  5. FENTANYL [Concomitant]
  6. ISOFLURANE [Concomitant]
  7. HYDROMORPHONE HCL [Concomitant]

REACTIONS (5)
  - DRUG INEFFECTIVE [None]
  - EXTRAPYRAMIDAL DISORDER [None]
  - HYPERHIDROSIS [None]
  - HYPERVENTILATION [None]
  - TETANY [None]
